FAERS Safety Report 9026666 (Version 1)
Quarter: 2013Q1

REPORT INFORMATION
  Report Type: Spontaneous
  Country: US (occurrence: None)
  Receive Date: 20130114
  Receipt Date: 20130114
  Transmission Date: 20140127
  Serious: Yes (Hospitalization)
  Sender: FDA-Public Use
  Company Number: None

PATIENT
  Age: 58 Year
  Sex: Female
  Weight: 84.82 kg

DRUGS (2)
  1. BACLOFEN [Suspect]
     Dosage: TOPIRAMATE 1 TAB TO 3 25MG 1/2 TO 3 TAB AS TOLEDATED.
     Dates: start: 20121102, end: 20121117
  2. BACLOFEN [Suspect]
     Dosage: TOPIRAMATE 1 TAB TO 3 25MG 1/2 TO 3 TAB AS TOLEDATED.
     Dates: start: 20121102, end: 20121117

REACTIONS (5)
  - Tinnitus [None]
  - Vision blurred [None]
  - Tremor [None]
  - Vomiting [None]
  - Cerebrovascular accident [None]
